FAERS Safety Report 14720417 (Version 1)
Quarter: 2018Q2

REPORT INFORMATION
  Report Type: Spontaneous
  Country: TR (occurrence: TR)
  Receive Date: 20180405
  Receipt Date: 20180405
  Transmission Date: 20180711
  Serious: Yes (Life-Threatening, Hospitalization)
  Sender: FDA-Public Use
  Company Number: TR-OTSUKA-2018_008128

PATIENT
  Age: 82 Year
  Sex: Male

DRUGS (2)
  1. DECITABINE. [Suspect]
     Active Substance: DECITABINE
     Indication: REFRACTORY ANAEMIA WITH AN EXCESS OF BLASTS
  2. DECITABINE. [Suspect]
     Active Substance: DECITABINE
     Indication: MYELODYSPLASTIC SYNDROME
     Dosage: IN 1 DAY 35 MG/M2, ALSO REPORTED AS 20 MG
     Route: 042
     Dates: start: 20180221, end: 2018

REACTIONS (1)
  - Cardiac cirrhosis [Recovering/Resolving]
